FAERS Safety Report 23887354 (Version 1)
Quarter: 2024Q2

REPORT INFORMATION
  Report Type: Spontaneous
  Country: US (occurrence: US)
  Receive Date: 20240523
  Receipt Date: 20240523
  Transmission Date: 20240716
  Serious: No
  Sender: FDA-Public Use
  Company Number: US-HALEON-2176815

PATIENT
  Age: 63 Year
  Sex: Female

DRUGS (1)
  1. SENSODYNE SENSITIVITY AND GUM MINT [Suspect]
     Active Substance: STANNOUS FLUORIDE
     Indication: Hyperaesthesia teeth
     Dosage: EXPDATE:202505
     Dates: start: 20240516

REACTIONS (1)
  - Drug ineffective [Not Recovered/Not Resolved]

NARRATIVE: CASE EVENT DATE: 20240516
